FAERS Safety Report 25845410 (Version 1)
Quarter: 2025Q3

REPORT INFORMATION
  Report Type: Spontaneous
  Country: EU (occurrence: EU)
  Receive Date: 20250925
  Receipt Date: 20250925
  Transmission Date: 20251021
  Serious: Yes (Life-Threatening, Other)
  Sender: MERZ
  Company Number: None

PATIENT

DRUGS (1)
  1. BOTULINUM TOXIN TYPE A [Suspect]
     Active Substance: BOTULINUM TOXIN TYPE A
     Indication: Product used for unknown indication
     Dosage: 1 DOSAGE FORM
     Route: 030
     Dates: start: 20250828, end: 20250828

REACTIONS (2)
  - Headache [Recovering/Resolving]
  - Botulism [Recovering/Resolving]

NARRATIVE: CASE EVENT DATE: 20250828
